FAERS Safety Report 7527374-7 (Version None)
Quarter: 2011Q2

REPORT INFORMATION
  Report Type: 
  Country: None (occurrence: None)
  Receive Date: 20110607
  Receipt Date: 20110524
  Transmission Date: 20111010
  Serious: Yes (Hospitalization)
  Sender: FDA-Public Use
  Company Number: FI-JNJFOC-20110511194

PATIENT
  Sex: Male

DRUGS (2)
  1. IMODIUM [Suspect]
     Indication: DIARRHOEA
     Dosage: NOT MORE THAN 4 PER DAY
     Route: 065
  2. IMODIUM [Suspect]
     Route: 065

REACTIONS (1)
  - INTENTIONAL DRUG MISUSE [None]
